FAERS Safety Report 13924952 (Version 1)
Quarter: 2017Q3

REPORT INFORMATION
  Report Type: Report from Study
  Country: US (occurrence: US)
  Receive Date: 20170831
  Receipt Date: 20170831
  Transmission Date: 20171127
  Serious: Yes (Other)
  Sender: FDA-Public Use
  Company Number: US-INGENUS PHARMACEUTICALS, LLC-INF201708-000398

PATIENT
  Age: 62 Year
  Sex: Female

DRUGS (5)
  1. ADRIAMYCIN [Concomitant]
     Active Substance: DOXORUBICIN HYDROCHLORIDE
  2. CYCLOPHOSPHAMIDE. [Concomitant]
     Active Substance: CYCLOPHOSPHAMIDE
     Dosage: 4 CYCLES
  3. PEGFILGRASTIM [Concomitant]
     Active Substance: PEGFILGRASTIM
  4. CARBOPLATIN. [Suspect]
     Active Substance: CARBOPLATIN
     Indication: TRIPLE NEGATIVE BREAST CANCER
     Dosage: 6 MG/ML/MIN
  5. TAXOL [Suspect]
     Active Substance: PACLITAXEL

REACTIONS (1)
  - Colitis ischaemic [Recovered/Resolved]
